FAERS Safety Report 6707569-2 (Version None)
Quarter: 2010Q2

REPORT INFORMATION
  Report Type: 
  Country: None (occurrence: None)
  Receive Date: 20100503
  Receipt Date: 20100422
  Transmission Date: 20101027
  Serious: Yes (Hospitalization, Other)
  Sender: FDA-Public Use
  Company Number: US-ELI_LILLY_AND_COMPANY-US200911001206

PATIENT
  Sex: Female

DRUGS (17)
  1. FORTEO [Suspect]
     Indication: OSTEOPOROSIS
     Dosage: 20 UG, DAILY (1/D)
     Dates: start: 20091012
  2. POTASSIUM CHLORIDE [Concomitant]
     Dosage: 10 MEQ, DAILY (1/D)
     Dates: start: 20091001
  3. TOPROL-XL/00376903/ [Concomitant]
     Dosage: 25 MG, DAILY (1/D)
     Dates: start: 20091001
  4. LASIX [Concomitant]
     Dosage: 20 MG, DAILY (1/D)
  5. LASIX [Concomitant]
     Dosage: 20 MG, DAILY (1/D)
  6. ASPIRIN [Concomitant]
     Dosage: 81 MG, DAILY (1/D)
  7. ASPIRIN [Concomitant]
     Dosage: 325 MG, DAILY (1/D)
  8. OSCAL D /01746701/ [Concomitant]
     Dates: start: 20091001
  9. DRONEDARONE HCL [Concomitant]
     Dosage: 400 MG, 2/D
  10. MOBIC [Concomitant]
     Dates: end: 20091001
  11. LIDODERM [Concomitant]
     Indication: BACK PAIN
  12. NEXIUM [Concomitant]
     Dosage: 40 MG, DAILY (1/D)
  13. MIACALCIN [Concomitant]
  14. TYLENOL (CAPLET) [Concomitant]
  15. PERCOCET [Concomitant]
  16. MIRALAX [Concomitant]
  17. COLACE [Concomitant]

REACTIONS (7)
  - ATRIAL FIBRILLATION [None]
  - BLOOD CALCIUM INCREASED [None]
  - CARDIAC FAILURE CONGESTIVE [None]
  - CARDIOMYOPATHY [None]
  - CYSTITIS [None]
  - NEPHROLITHIASIS [None]
  - RESTRICTIVE PULMONARY DISEASE [None]
